FAERS Safety Report 6220295-1 (Version None)
Quarter: 2009Q2

REPORT INFORMATION
  Report Type: 
  Country: None (occurrence: None)
  Receive Date: 20090518
  Receipt Date: 20090428
  Transmission Date: 20091009
  Serious: Yes (Hospitalization, Other)
  Sender: FDA-Public Use
  Company Number: BVT-000088

PATIENT
  Sex: Male
  Weight: 73 kg

DRUGS (15)
  1. KINERET [Suspect]
     Dosage: (100 MG QD SUBCUTANEOUS), (100 MG QD SUBCUTANEOUS)
     Route: 058
     Dates: start: 20061201, end: 20080108
  2. KINERET [Suspect]
     Dosage: (100 MG QD SUBCUTANEOUS), (100 MG QD SUBCUTANEOUS)
     Route: 058
     Dates: start: 20080122
  3. ANTIINFLAMMATORY/ANTIRHEUMATIC NON-STEROIDS [Concomitant]
  4. GLUCOCORTICOIDS [Concomitant]
  5. METHOTREXATE [Concomitant]
  6. CYCLOPHOSPHAMIDE [Concomitant]
  7. PREDNISOLONE [Concomitant]
  8. ETANERCEPT [Concomitant]
  9. CLEMASTINE FUMARATE [Concomitant]
  10. LORATADINE [Concomitant]
  11. AZATHIOPRINE [Concomitant]
  12. ESOMEPRAZOLE MAGNESIUM [Concomitant]
  13. CALCIUM CARBONATE [Concomitant]
  14. CHOLECALCIFEROL [Concomitant]
  15. ASPIRIN [Concomitant]

REACTIONS (4)
  - DRUG ERUPTION [None]
  - HAEMATOCRIT DECREASED [None]
  - HAEMOGLOBIN DECREASED [None]
  - PLATELET COUNT INCREASED [None]
